FAERS Safety Report 6979489-X (Version None)
Quarter: 2010Q3

REPORT INFORMATION
  Report Type: 
  Country: None (occurrence: None)
  Receive Date: 20100913
  Receipt Date: 20100908
  Transmission Date: 20110219
  Serious: Yes (Death)
  Sender: FDA-Public Use
  Company Number: US-GILEAD-2010-0031706

PATIENT
  Age: 90 Year
  Sex: Female
  Weight: 63.56 kg

DRUGS (17)
  1. LETAIRIS [Suspect]
     Indication: PULMONARY ARTERIAL HYPERTENSION
     Route: 048
     Dates: start: 20091027
  2. REVATIO [Concomitant]
  3. LASIX [Concomitant]
  4. PULMICORT [Concomitant]
  5. DIOVAN [Concomitant]
  6. REQUIP [Concomitant]
  7. METHADONE [Concomitant]
  8. LORAZEPAM [Concomitant]
  9. TRAZODONE HCL [Concomitant]
  10. DILAUDID [Concomitant]
  11. ZOLOFT [Concomitant]
  12. AMBIEN [Concomitant]
  13. STOOL SOFTENER [Concomitant]
  14. ALLOPURINOL [Concomitant]
  15. CENTRUM SILVER [Concomitant]
  16. CALTRATE [Concomitant]
  17. TYLENOL [Concomitant]

REACTIONS (1)
  - DEATH [None]
